FAERS Safety Report 5873630-8 (Version None)
Quarter: 2008Q3

REPORT INFORMATION
  Report Type: 
  Country: None (occurrence: None)
  Receive Date: 20080908
  Receipt Date: 20080829
  Transmission Date: 20090109
  Serious: Yes (Hospitalization)
  Sender: FDA-Public Use
  Company Number: A0733719A

PATIENT
  Age: 61 Year
  Sex: Female
  Weight: 96.4 kg

DRUGS (11)
  1. AVANDIA [Suspect]
     Dosage: 8MG PER DAY
     Route: 048
     Dates: start: 20020401, end: 20040620
  2. VICODIN [Concomitant]
  3. ASPIRIN [Concomitant]
     Dosage: 81G PER DAY
  4. MICRONASE [Concomitant]
  5. INSULIN [Concomitant]
  6. TYLENOL (CAPLET) [Concomitant]
  7. CLONIDINE [Concomitant]
     Dosage: .2MG THREE TIMES PER DAY
  8. GLYBURIDE [Concomitant]
     Dosage: 10MG TWICE PER DAY
  9. ATENOLOL [Concomitant]
     Dosage: 50MG PER DAY
  10. HYDROCHLOROTHIAZIDE [Concomitant]
  11. DAYPRO [Concomitant]

REACTIONS (7)
  - ACUTE MYOCARDIAL INFARCTION [None]
  - ANGINA UNSTABLE [None]
  - ATRIAL FIBRILLATION [None]
  - CARDIAC FAILURE CONGESTIVE [None]
  - CORONARY ARTERY DISEASE [None]
  - MYOCARDIAL INFARCTION [None]
  - TRANSIENT ISCHAEMIC ATTACK [None]
